FAERS Safety Report 15621763 (Version 6)
Quarter: 2020Q4

REPORT INFORMATION
  Report Type: Spontaneous
  Country: US (occurrence: US)
  Receive Date: 20181115
  Receipt Date: 20201224
  Transmission Date: 20210113
  Serious: Yes (Hospitalization, Other)
  Sender: FDA-Public Use
  Company Number: US-PFIZER INC-2018472085

PATIENT
  Age: 70 Year
  Sex: Female
  Weight: 84 kg

DRUGS (14)
  1. LYRICA [Suspect]
     Active Substance: PREGABALIN
     Indication: MONONEUROPATHY
  2. XANAX [Concomitant]
     Active Substance: ALPRAZOLAM
     Indication: ANXIETY
     Dosage: 1 MG, AS NEEDED
     Dates: start: 20180514
  3. ALPHAGAN P [Concomitant]
     Active Substance: BRIMONIDINE TARTRATE
     Dosage: 2 GTT, 2X/DAY (1 DROP INTO BOTH EYES TWO TIMES A DAY)
     Route: 047
     Dates: start: 20160727
  4. COUMADIN [Concomitant]
     Active Substance: WARFARIN SODIUM
     Dosage: 1+1/2 TABS ON MONDAYS, WEDNESDAYS, AND FRIDAYS AND 2 TABS ALL OTHER DAYS OF THE WEEK
     Dates: start: 20181127
  5. ATROVENT HFA [Concomitant]
     Active Substance: IPRATROPIUM BROMIDE
     Indication: WHEEZING
     Dosage: UNK, AS NEEDED [2 PUFFS INTO THE LUNGS EVERY SIX HOURS AS NEEDED]
     Route: 055
     Dates: start: 20180703
  6. LEXAPRO [Concomitant]
     Active Substance: ESCITALOPRAM OXALATE
     Dosage: 0.5 DF, 1X/DAY (10 MG)
     Route: 048
     Dates: start: 20180718
  7. MAGNESIUM OXIDE. [Concomitant]
     Active Substance: MAGNESIUM OXIDE
     Dosage: 400 MG, 1X/DAY
     Route: 048
     Dates: start: 20180402
  8. SENOKOT-S [Concomitant]
     Active Substance: DOCUSATE SODIUM\SENNOSIDES
     Dosage: 1 DF, 2X/DAY [DOCUSATE SODIUM: 50 MG/ SENNA ALEXANDRINA: 8.6MG] [50-8.6 MG]
     Route: 048
     Dates: start: 20180119
  9. LYRICA [Suspect]
     Active Substance: PREGABALIN
     Indication: NEUROPATHY PERIPHERAL
     Dosage: 150 MG, 2X/DAY (TAKE 1 CAP BY MOUTH TWO TIMES A DAY)
     Route: 048
     Dates: start: 200904
  10. BYSTOLIC [Concomitant]
     Active Substance: NEBIVOLOL HYDROCHLORIDE
     Dosage: 0.5 DF, 1X/DAY
     Route: 048
     Dates: start: 20180402
  11. TRAVATAN Z [Concomitant]
     Active Substance: TRAVOPROST
     Dosage: 2 GTT, 1X/DAY (1 DROP INTO BOTH EYES AT BEDTIME)
     Route: 047
  12. SINGULAIR [Concomitant]
     Active Substance: MONTELUKAST SODIUM
     Dosage: 10 MG, 1X/DAY [AT BEDTIME]
     Route: 048
     Dates: start: 20180703
  13. LYRICA [Suspect]
     Active Substance: PREGABALIN
     Indication: NEURALGIA
  14. ZYRTEC [Concomitant]
     Active Substance: CETIRIZINE HYDROCHLORIDE
     Indication: HYPERSENSITIVITY
     Dosage: 10 MG ONE TIME A DAY AS NEEDED
     Route: 048

REACTIONS (1)
  - Withdrawal syndrome [Recovered/Resolved]

NARRATIVE: CASE EVENT DATE: 20181103
